FAERS Safety Report 14853729 (Version 1)
Quarter: 2018Q2

REPORT INFORMATION
  Report Type: Spontaneous
  Country: US (occurrence: US)
  Receive Date: 20180421
  Receipt Date: 20180421
  Transmission Date: 20180711
  Serious: No
  Sender: FDA-Public Use
  Company Number: None

PATIENT
  Age: 61 Year
  Sex: Male
  Weight: 103.5 kg

DRUGS (1)
  1. XIAFLEX [Suspect]
     Active Substance: COLLAGENASE CLOSTRIDIUM HISTOLYTICUM
     Indication: PEYRONIE^S DISEASE
     Dosage: OTHER ROUTE:INJECTED INTO THE PENIS?
     Dates: start: 20180212, end: 20180215

REACTIONS (2)
  - Erectile dysfunction [None]
  - Frustration tolerance decreased [None]

NARRATIVE: CASE EVENT DATE: 20180215
